FAERS Safety Report 20547809 (Version 1)
Quarter: 2022Q1

REPORT INFORMATION
  Report Type: Report from Study
  Country: US (occurrence: US)
  Receive Date: 20220303
  Receipt Date: 20220303
  Transmission Date: 20220424
  Serious: Yes (Hospitalization, Other)
  Sender: FDA-Public Use
  Company Number: US-TAKEDA-US201604545

PATIENT
  Age: 49 Year
  Sex: Female
  Weight: 51 kg

DRUGS (26)
  1. TEDUGLUTIDE [Suspect]
     Active Substance: TEDUGLUTIDE
     Indication: Short-bowel syndrome
     Dosage: 2.8 MG, 3X/WEEK
     Route: 058
     Dates: start: 20150202
  2. TEDUGLUTIDE [Suspect]
     Active Substance: TEDUGLUTIDE
     Indication: Short-bowel syndrome
     Dosage: 2.8 MG, 3X/WEEK
     Route: 058
     Dates: start: 20150202
  3. TEDUGLUTIDE [Suspect]
     Active Substance: TEDUGLUTIDE
     Indication: Short-bowel syndrome
     Dosage: 2.8 MG, 3X/WEEK
     Route: 058
     Dates: start: 20150202
  4. TEDUGLUTIDE [Suspect]
     Active Substance: TEDUGLUTIDE
     Indication: Short-bowel syndrome
     Dosage: 2.8 MG, 3X/WEEK
     Route: 058
     Dates: start: 20150202
  5. TEDUGLUTIDE [Suspect]
     Active Substance: TEDUGLUTIDE
     Dosage: 2.8 MG, 1X/DAY:QD
     Route: 058
     Dates: start: 20131020, end: 20150202
  6. TEDUGLUTIDE [Suspect]
     Active Substance: TEDUGLUTIDE
     Dosage: 2.8 MG, 1X/DAY:QD
     Route: 058
     Dates: start: 20131020, end: 20150202
  7. TEDUGLUTIDE [Suspect]
     Active Substance: TEDUGLUTIDE
     Dosage: 2.8 MG, 1X/DAY:QD
     Route: 058
     Dates: start: 20131020, end: 20150202
  8. TEDUGLUTIDE [Suspect]
     Active Substance: TEDUGLUTIDE
     Dosage: 2.8 MG, 1X/DAY:QD
     Route: 058
     Dates: start: 20131020, end: 20150202
  9. TEDUGLUTIDE [Suspect]
     Active Substance: TEDUGLUTIDE
     Dosage: 2.8 MILLIGRAM
     Route: 065
     Dates: start: 20150203, end: 201511
  10. TEDUGLUTIDE [Suspect]
     Active Substance: TEDUGLUTIDE
     Dosage: 2.8 MILLIGRAM
     Route: 065
     Dates: start: 20150203, end: 201511
  11. TEDUGLUTIDE [Suspect]
     Active Substance: TEDUGLUTIDE
     Dosage: 2.8 MILLIGRAM
     Route: 065
     Dates: start: 20150203, end: 201511
  12. TEDUGLUTIDE [Suspect]
     Active Substance: TEDUGLUTIDE
     Dosage: 2.8 MILLIGRAM
     Route: 065
     Dates: start: 20150203, end: 201511
  13. TPN [Concomitant]
     Active Substance: AMINO ACIDS\DEXTROSE\ELECTROLYTES NOS\SOYBEAN OIL
     Indication: Parenteral nutrition
     Dosage: 1.07 L, 4X/WK
     Route: 051
     Dates: start: 20151007, end: 20151007
  14. TPN [Concomitant]
     Active Substance: AMINO ACIDS\DEXTROSE\ELECTROLYTES NOS\SOYBEAN OIL
     Dosage: 1.1 L, 3X/WK
     Route: 051
     Dates: start: 20151009
  15. TPN [Concomitant]
     Active Substance: AMINO ACIDS\DEXTROSE\ELECTROLYTES NOS\SOYBEAN OIL
     Dosage: 1.1 L, 3X/WEEK
     Dates: start: 20150522, end: 20151006
  16. TPN [Concomitant]
     Active Substance: AMINO ACIDS\DEXTROSE\ELECTROLYTES NOS\SOYBEAN OIL
     Dosage: 0.78 L, 5X/WEEK
     Route: 051
     Dates: start: 20150407, end: 20150521
  17. TPN [Concomitant]
     Active Substance: AMINO ACIDS\DEXTROSE\ELECTROLYTES NOS\SOYBEAN OIL
     Dosage: 1.5 L,  2X/WEEK
     Route: 051
     Dates: start: 20141231, end: 20150406
  18. TPN [Concomitant]
     Active Substance: AMINO ACIDS\DEXTROSE\ELECTROLYTES NOS\SOYBEAN OIL
     Dosage: UNK, UNKNOWN
     Route: 051
     Dates: start: 2009
  19. KETAMINE HYDROCHLORIDE [Concomitant]
     Active Substance: KETAMINE HYDROCHLORIDE
     Indication: Pain
     Dosage: 100 UNK, 1X/DAY:QD
     Route: 061
     Dates: start: 20140711
  20. DIETARY SUPPLEMENT\HERBALS\MILK THISTLE [Concomitant]
     Active Substance: DIETARY SUPPLEMENT\HERBALS\MILK THISTLE
     Indication: Phytotherapy
     Dosage: UNK, 1X/DAY:QD
     Route: 048
     Dates: start: 20140711
  21. MULTIVITAMIN                       /00097801/ [Concomitant]
     Indication: Vitamin supplementation
     Dosage: UNK, 1X/DAY:QD
     Route: 048
     Dates: start: 20140711
  22. PREVACID [Concomitant]
     Active Substance: LANSOPRAZOLE
     Indication: Gastrooesophageal reflux disease
     Dosage: 30 MG, 1X/DAY:QD
     Route: 048
     Dates: start: 20130124
  23. LIDOCAINE [Concomitant]
     Active Substance: LIDOCAINE
     Indication: Hepatic encephalopathy
     Dosage: UNK
     Route: 065
     Dates: start: 20200902, end: 20200902
  24. ASPIRIN [Concomitant]
     Active Substance: ASPIRIN
     Indication: Hepatic encephalopathy
     Dosage: 81 MILLIGRAM
     Route: 048
     Dates: start: 20200902, end: 20200902
  25. KEPPRA [Concomitant]
     Active Substance: LEVETIRACETAM
     Indication: Hepatic encephalopathy
     Dosage: 750 MILLIGRAM, BID
     Route: 048
     Dates: start: 20200902, end: 20200902
  26. TACROLIMUS [Concomitant]
     Active Substance: TACROLIMUS
     Indication: Hepatic encephalopathy
     Dosage: 2.00 MILLIGRAM, BID
     Route: 048
     Dates: start: 20200902, end: 20200902

REACTIONS (2)
  - Pyrexia [Recovered/Resolved]
  - Hepatic atrophy [Not Recovered/Not Resolved]

NARRATIVE: CASE EVENT DATE: 20151007
